FAERS Safety Report 6095304-3 (Version None)
Quarter: 2009Q1

REPORT INFORMATION
  Report Type: 
  Country: None (occurrence: None)
  Receive Date: 20090227
  Receipt Date: 20080304
  Transmission Date: 20090719
  Serious: No
  Sender: FDA-Public Use
  Company Number: A0713287A

PATIENT
  Age: 21 Year
  Sex: Male

DRUGS (1)
  1. LAMICTAL [Suspect]
     Indication: BIPOLAR DISORDER
     Dosage: 100MG PER DAY
     Route: 048
     Dates: start: 20080227, end: 20080229

REACTIONS (2)
  - AGITATION [None]
  - ANGER [None]
